FAERS Safety Report 12355979 (Version 2)
Quarter: 2016Q2

REPORT INFORMATION
  Report Type: Spontaneous
  Country: FR (occurrence: FR)
  Receive Date: 20160511
  Receipt Date: 20160513
  Transmission Date: 20160815
  Serious: Yes (Other)
  Sender: FDA-Public Use
  Company Number: FR-JNJFOC-20160502907

PATIENT
  Age: 49 Year
  Sex: Male

DRUGS (15)
  1. GRANOCYTE [Suspect]
     Active Substance: LENOGRASTIM
     Indication: PROPHYLAXIS OF NAUSEA AND VOMITING
     Dosage: DAY 4 TO 8
     Route: 058
     Dates: start: 20160328, end: 20160401
  2. INEXIUM [Concomitant]
     Active Substance: ESOMEPRAZOLE
     Route: 065
     Dates: start: 20160325
  3. PREDNISOLONE SODIUM SULFOBENZOATE [Suspect]
     Active Substance: PREDNISOLONE SODIUM METAZOATE
     Indication: PREMEDICATION
     Dosage: TRADE NAME: SOLUPRED
     Route: 048
     Dates: start: 20160325, end: 20160327
  4. LERCAPRESS [Concomitant]
     Active Substance: ENALAPRIL MALEATE\LERCANIDIPINE HYDROCHLORIDE
     Indication: HYPERTENSION
     Route: 065
  5. ALOXI [Suspect]
     Active Substance: PALONOSETRON HYDROCHLORIDE
     Indication: PROPHYLAXIS OF NAUSEA AND VOMITING
     Route: 042
     Dates: start: 20160325, end: 20160325
  6. ALOXI [Suspect]
     Active Substance: PALONOSETRON HYDROCHLORIDE
     Indication: PROPHYLAXIS OF NAUSEA AND VOMITING
     Route: 042
     Dates: start: 20160325, end: 20160325
  7. GRANOCYTE [Suspect]
     Active Substance: LENOGRASTIM
     Indication: NAUSEA
     Dosage: DAY 4 TO 8
     Route: 058
     Dates: start: 20160328, end: 20160401
  8. MACROGOL [Concomitant]
     Active Substance: POLYETHYLENE GLYCOLS
     Route: 065
  9. SKENAN [Concomitant]
     Active Substance: MORPHINE SULFATE
     Route: 065
  10. YONDELIS [Suspect]
     Active Substance: TRABECTEDIN
     Indication: LEIOMYOSARCOMA
     Dosage: 3 MG OVER 24-HOURS
     Route: 042
     Dates: start: 20160325, end: 20160326
  11. PRIMPERAN [Suspect]
     Active Substance: METOCLOPRAMIDE HYDROCHLORIDE
     Indication: NAUSEA
     Route: 065
  12. ZOPHREN [Suspect]
     Active Substance: ONDANSETRON
     Indication: NAUSEA
     Route: 048
     Dates: start: 20160326, end: 20160326
  13. ACTISKENAN [Concomitant]
     Active Substance: MORPHINE SULFATE
     Route: 065
  14. ESIDREX [Concomitant]
     Active Substance: HYDROCHLOROTHIAZIDE
     Indication: HYPERTENSION
     Route: 065
  15. PREDNISOLONE SODIUM SULFOBENZOATE [Suspect]
     Active Substance: PREDNISOLONE SODIUM METAZOATE
     Indication: NAUSEA
     Dosage: TRADE NAME: SOLUPRED
     Route: 048
     Dates: start: 20160325, end: 20160327

REACTIONS (4)
  - Pyrexia [Recovered/Resolved with Sequelae]
  - Liver injury [Recovering/Resolving]
  - Pancytopenia [Recovering/Resolving]
  - Nausea [Recovered/Resolved with Sequelae]

NARRATIVE: CASE EVENT DATE: 20160325
